FAERS Safety Report 8001607-5 (Version None)
Quarter: 2011Q4

REPORT INFORMATION
  Report Type: 
  Country: None (occurrence: None)
  Receive Date: 20111222
  Receipt Date: 20111213
  Transmission Date: 20120403
  Serious: Yes (Other)
  Sender: FDA-Public Use
  Company Number: US-JNJFOC-20111206708

PATIENT
  Sex: Female
  Weight: 47.63 kg

DRUGS (1)
  1. TOPAMAX [Suspect]
     Indication: CONVULSION
     Route: 048

REACTIONS (4)
  - OSTEONECROSIS [None]
  - FRACTURE [None]
  - TENDONITIS [None]
  - BUNION [None]
